FAERS Safety Report 15295296 (Version 2)
Quarter: 2018Q3

REPORT INFORMATION
  Report Type: Spontaneous
  Country: PT (occurrence: PT)
  Receive Date: 20180820
  Receipt Date: 20180925
  Transmission Date: 20181010
  Serious: Yes (Other)
  Sender: FDA-Public Use
  Company Number: PT-AUROBINDO-AUR-APL-2018-041951

PATIENT
  Age: 82 Year
  Sex: Female

DRUGS (1)
  1. AMIODARONE [Suspect]
     Active Substance: AMIODARONE
     Indication: ATRIAL FIBRILLATION
     Dosage: UNK
     Route: 065
     Dates: start: 2013

REACTIONS (8)
  - Anxiety [Unknown]
  - Insomnia [Unknown]
  - Dizziness [Unknown]
  - Syncope [Unknown]
  - Bradycardia [Recovered/Resolved]
  - Palpitations [Unknown]
  - Hyperthyroidism [Recovered/Resolved]
  - Weight decreased [Unknown]
